FAERS Safety Report 15192313 (Version 1)
Quarter: 2018Q3

REPORT INFORMATION
  Report Type: Spontaneous
  Country: GB (occurrence: GB)
  Receive Date: 20180724
  Receipt Date: 20180724
  Transmission Date: 20181010
  Serious: Yes (Other)
  Sender: FDA-Public Use
  Company Number: PHHY2018GB049936

PATIENT
  Age: 57 Year
  Sex: Female

DRUGS (5)
  1. ZOLADEX [Suspect]
     Active Substance: GOSERELIN ACETATE
     Indication: PRODUCT USED FOR UNKNOWN INDICATION
     Dosage: UNK
     Route: 058
     Dates: start: 20060728, end: 20080822
  2. FASLODEX [Suspect]
     Active Substance: FULVESTRANT
     Indication: PRODUCT USED FOR UNKNOWN INDICATION
     Dosage: UNK
     Route: 030
     Dates: start: 201507, end: 201510
  3. FASLODEX [Suspect]
     Active Substance: FULVESTRANT
     Dosage: UNK
     Route: 030
     Dates: start: 201510, end: 201604
  4. ANASTROZOLE. [Suspect]
     Active Substance: ANASTROZOLE
     Indication: PRODUCT USED FOR UNKNOWN INDICATION
     Dosage: UNK
     Route: 048
     Dates: start: 20060728, end: 20080822
  5. TAMOXIFEN [Suspect]
     Active Substance: TAMOXIFEN
     Indication: PRODUCT USED FOR UNKNOWN INDICATION
     Dosage: 20 MG, QD
     Route: 048
     Dates: start: 1997, end: 2002

REACTIONS (4)
  - Metastases to skin [Not Recovered/Not Resolved]
  - Breast cancer recurrent [Unknown]
  - Horner^s syndrome [Unknown]
  - Malignant neoplasm progression [Not Recovered/Not Resolved]

NARRATIVE: CASE EVENT DATE: 200607
